FAERS Safety Report 5812833-5 (Version None)
Quarter: 2008Q3

REPORT INFORMATION
  Report Type: 
  Country: None (occurrence: None)
  Receive Date: 20080717
  Receipt Date: 20080717
  Transmission Date: 20090109
  Serious: Yes (Life-Threatening, Hospitalization, Disabling)
  Sender: FDA-Public Use
  Company Number: None

PATIENT
  Sex: Male
  Weight: 86.1834 kg

DRUGS (2)
  1. HEPARIN [Suspect]
     Indication: SURGERY
     Dates: start: 20060807
  2. HEPARIN [Suspect]
     Indication: SURGERY
     Dates: start: 20060811

REACTIONS (3)
  - BLOOD PRESSURE DECREASED [None]
  - OPERATIVE HAEMORRHAGE [None]
  - TOE AMPUTATION [None]
